FAERS Safety Report 8999806 (Version 2)
Quarter: 2013Q2

REPORT INFORMATION
  Report Type: Spontaneous
  Country: US (occurrence: US)
  Receive Date: 20130102
  Receipt Date: 20130409
  Transmission Date: 20140414
  Serious: No
  Sender: FDA-Public Use
  Company Number: US-009507513-1301USA000118

PATIENT
  Sex: 0

DRUGS (1)
  1. BCG VACCINE USP [Suspect]
     Dosage: UNK
     Route: 043

REACTIONS (2)
  - Wrong drug administered [Unknown]
  - No adverse event [Unknown]
